FAERS Safety Report 8287783-8 (Version None)
Quarter: 2012Q2

REPORT INFORMATION
  Report Type: 
  Country: None (occurrence: None)
  Receive Date: 20120416
  Receipt Date: 20120405
  Transmission Date: 20120825
  Serious: Yes (Hospitalization, Other)
  Sender: FDA-Public Use
  Company Number: JP-MERCK-1111USA03598

PATIENT
  Age: 83 Year
  Sex: Male

DRUGS (7)
  1. ARICEPT [Concomitant]
     Route: 065
  2. LASIX [Concomitant]
     Route: 065
  3. NORVASC [Concomitant]
     Route: 065
  4. PLAVIX [Concomitant]
     Route: 065
  5. DIGOXIN [Concomitant]
     Route: 065
  6. AMARYL [Concomitant]
     Route: 065
  7. JANUVIA [Suspect]
     Indication: TYPE 2 DIABETES MELLITUS
     Route: 048
     Dates: start: 20101030, end: 20101101

REACTIONS (11)
  - ASPARTATE AMINOTRANSFERASE INCREASED [None]
  - CARBOHYDRATE ANTIGEN 19-9 INCREASED [None]
  - HYPOTHYROIDISM [None]
  - ALANINE AMINOTRANSFERASE INCREASED [None]
  - BLOOD UREA INCREASED [None]
  - DECREASED APPETITE [None]
  - HEPATITIS C ANTIBODY POSITIVE [None]
  - NEPHROGENIC ANAEMIA [None]
  - HEPATIC FUNCTION ABNORMAL [None]
  - BLOOD CREATININE INCREASED [None]
  - HYPERGLYCAEMIA [None]
